FAERS Safety Report 6607116-X (Version None)
Quarter: 2010Q1

REPORT INFORMATION
  Report Type: 
  Country: None (occurrence: None)
  Receive Date: 20100219
  Receipt Date: 20100203
  Transmission Date: 20100710
  Serious: Yes (Death)
  Sender: FDA-Public Use
  Company Number: AUR-APL-2009-00325

PATIENT
  Age: 49 Year
  Sex: Female

DRUGS (10)
  1. METFORMIN HCL [Suspect]
     Indication: DIABETES MELLITUS
     Dosage: 1000MG, BID, ORAL
     Route: 048
     Dates: start: 20060101
  2. AMISULPRIDE [Suspect]
     Indication: ABNORMAL BEHAVIOUR
     Dosage: 600MG, DAILY, ORAL
     Route: 048
     Dates: start: 20060101
  3. DIAZEPAM [Concomitant]
  4. HYDROCORTISONE TOPICAL [Concomitant]
  5. INSULIN [Concomitant]
  6. MOVICOL [Concomitant]
  7. QUETIAPINE [Concomitant]
  8. SENNA [Concomitant]
  9. TRAZODONE HCL [Concomitant]
  10. ZOPICLONE [Concomitant]

REACTIONS (4)
  - OVERDOSE [None]
  - PULMONARY CONGESTION [None]
  - RENAL IMPAIRMENT [None]
  - THERAPEUTIC AGENT TOXICITY [None]
